FAERS Safety Report 23303486 (Version 1)
Quarter: 2023Q4

REPORT INFORMATION
  Report Type: Spontaneous
  Country: GB (occurrence: GB)
  Receive Date: 20231215
  Receipt Date: 20231215
  Transmission Date: 20240110
  Serious: Yes (Death, Other)
  Sender: FDA-Public Use
  Company Number: GB-KYOWAKIRIN-2023KK019095

PATIENT

DRUGS (1)
  1. POTELIGEO [Suspect]
     Active Substance: MOGAMULIZUMAB-KPKC
     Indication: Product used for unknown indication
     Dosage: UNK
     Route: 042
     Dates: start: 20220601, end: 20230913

REACTIONS (2)
  - Sepsis [Fatal]
  - Pneumonia [Fatal]
